FAERS Safety Report 7086713-4 (Version None)
Quarter: 2010Q4

REPORT INFORMATION
  Report Type: 
  Country: None (occurrence: None)
  Receive Date: 20101105
  Receipt Date: 20101025
  Transmission Date: 20110411
  Serious: Yes (Death, Other)
  Sender: FDA-Public Use
  Company Number: US-ROCHE-736756

PATIENT

DRUGS (4)
  1. ISOTRETINOIN [Suspect]
     Indication: NEUROBLASTOMA
     Route: 065
  2. CH14.18 (ANTI-GD2 MONOCLONAL ANTIBODY) [Suspect]
     Indication: NEUROBLASTOMA
     Route: 065
  3. GRANULOCYTE MACROPHAGE COLONY-STIMULATING FACTOR [Suspect]
     Indication: NEUROBLASTOMA
     Route: 065
  4. INTERLEUKIN [Suspect]
     Indication: NEUROBLASTOMA
     Dosage: DRUG NAME: INTERLEUKIN2-2; ROUTE: CONTINUOUS INFUSION.
     Route: 050

REACTIONS (22)
  - ALANINE AMINOTRANSFERASE ABNORMAL [None]
  - ASPARTATE AMINOTRANSFERASE ABNORMAL [None]
  - CAPILLARY LEAK SYNDROME [None]
  - CONVULSION [None]
  - DEVICE RELATED INFECTION [None]
  - DIARRHOEA [None]
  - HYPERCALCAEMIA [None]
  - HYPERSENSITIVITY [None]
  - HYPOKALAEMIA [None]
  - HYPONATRAEMIA [None]
  - HYPOTENSION [None]
  - HYPOXIA [None]
  - INFECTION [None]
  - NAUSEA [None]
  - NERVOUS SYSTEM DISORDER [None]
  - NEURALGIA [None]
  - OVERDOSE [None]
  - PULMONARY OEDEMA [None]
  - PYREXIA [None]
  - SERUM SICKNESS [None]
  - URTICARIA [None]
  - VOMITING [None]
